FAERS Safety Report 5916484-3 (Version None)
Quarter: 2008Q4

REPORT INFORMATION
  Report Type: 
  Country: None (occurrence: None)
  Receive Date: 20081013
  Receipt Date: 20081003
  Transmission Date: 20090506
  Serious: Yes (Hospitalization)
  Sender: FDA-Public Use
  Company Number: A0731308A

PATIENT
  Sex: Female
  Weight: 95.5 kg

DRUGS (4)
  1. AVANDIA [Suspect]
     Dosage: 8MG PER DAY
     Route: 048
     Dates: start: 20021201, end: 20050301
  2. GLUCOPHAGE [Concomitant]
     Dates: start: 19860101, end: 20050110
  3. METFORMIN HCL [Concomitant]
     Dates: start: 19860101, end: 20050110
  4. DIABETA [Concomitant]
     Dates: start: 20020101, end: 20070101

REACTIONS (9)
  - ADVERSE EVENT [None]
  - BACK PAIN [None]
  - CARDIAC FAILURE CONGESTIVE [None]
  - DEPRESSION [None]
  - FLUID RETENTION [None]
  - INJURY [None]
  - NEUROPATHY PERIPHERAL [None]
  - OEDEMA [None]
  - PAIN [None]
